FAERS Safety Report 13992966 (Version 1)
Quarter: 2017Q3

REPORT INFORMATION
  Report Type: Spontaneous
  Country: SI (occurrence: SI)
  Receive Date: 20170920
  Receipt Date: 20170920
  Transmission Date: 20171128
  Serious: Yes (Other)
  Sender: FDA-Public Use
  Company Number: SI-AMGEN-SVNSP2017139451

PATIENT
  Age: 88 Year
  Sex: Female

DRUGS (6)
  1. PROLIA [Suspect]
     Active Substance: DENOSUMAB
     Indication: PRODUCT USED FOR UNKNOWN INDICATION
     Dosage: UNK, UNK
     Route: 065
     Dates: start: 20161228
  2. FASLODEX [Concomitant]
     Active Substance: FULVESTRANT
     Dosage: UNK
  3. ALDACTONE [Concomitant]
     Active Substance: SPIRONOLACTONE
  4. ARIMIDEX [Concomitant]
     Active Substance: ANASTROZOLE
     Dosage: UNK
     Dates: start: 2014
  5. NOLVADEX [Concomitant]
     Active Substance: TAMOXIFEN CITRATE
  6. MAREVAN [Concomitant]
     Active Substance: WARFARIN SODIUM

REACTIONS (1)
  - Fracture [Unknown]
